FAERS Safety Report 13631992 (Version 2)
Quarter: 2017Q4

REPORT INFORMATION
  Report Type: Spontaneous
  Country: FR (occurrence: FR)
  Receive Date: 20170608
  Receipt Date: 20171003
  Transmission Date: 20180320
  Serious: Yes (Other)
  Sender: FDA-Public Use
  Company Number: FR-ALLERGAN-1723218US

PATIENT
  Age: 72 Year
  Sex: Female

DRUGS (3)
  1. GANFORT [Suspect]
     Active Substance: BIMATOPROST\TIMOLOL
     Indication: OPEN ANGLE GLAUCOMA
     Dosage: 1 GTT, QPM
     Route: 047
     Dates: start: 20170105, end: 20170117
  2. GANFORT [Suspect]
     Active Substance: BIMATOPROST\TIMOLOL
     Dosage: 1 GTT, QPM
     Route: 047
     Dates: start: 20170417, end: 20170419
  3. PROTOPIC [Concomitant]
     Active Substance: TACROLIMUS
     Indication: VITILIGO
     Dosage: UNK, UNKNOWN
     Route: 061

REACTIONS (1)
  - Iridocyclitis [Recovered/Resolved]
